FAERS Safety Report 6086040-8 (Version None)
Quarter: 2009Q1

REPORT INFORMATION
  Report Type: 
  Country: None (occurrence: None)
  Receive Date: 20090217
  Receipt Date: 20090217
  Transmission Date: 20090719
  Serious: Yes (Death)
  Sender: FDA-Public Use
  Company Number: None

PATIENT
  Age: 39 Year
  Sex: Female
  Weight: 117.9352 kg

DRUGS (1)
  1. NUVARING [Suspect]
     Dates: start: 20080526, end: 20080726

REACTIONS (1)
  - CEREBRAL HAEMORRHAGE [None]
